FAERS Safety Report 14706419 (Version 2)
Quarter: 2020Q3

REPORT INFORMATION
  Report Type: Spontaneous
  Country: PL (occurrence: PL)
  Receive Date: 20180402
  Receipt Date: 20200702
  Transmission Date: 20201102
  Serious: Yes (Congenital Anomaly, Other)
  Sender: FDA-Public Use
  Company Number: PL-SA-2018SA089884

PATIENT

DRUGS (10)
  1. DOCETAXEL. [Suspect]
     Active Substance: DOCETAXEL
     Indication: MALIGNANT NIPPLE NEOPLASM
     Dosage: 113 MG,UNK
     Route: 042
     Dates: start: 20170802, end: 20170802
  2. FLUCONAZOLE. [Concomitant]
     Active Substance: FLUCONAZOLE
     Indication: FEBRILE NEUTROPENIA
     Dosage: 50 MG, Q12H
     Route: 048
     Dates: start: 20170811, end: 20170815
  3. TRASTUZUMAB. [Suspect]
     Active Substance: TRASTUZUMAB
     Indication: BREAST CANCER FEMALE
     Dosage: 4.6 MG
     Route: 042
     Dates: start: 20170802, end: 20170802
  4. PERJETA [Suspect]
     Active Substance: PERTUZUMAB
     Indication: MALIGNANT NIPPLE NEOPLASM
     Dosage: 840 MG,UNK
     Route: 042
     Dates: start: 20170802, end: 20170802
  5. TRASTUZUMAB. [Suspect]
     Active Substance: TRASTUZUMAB
     Indication: MALIGNANT NIPPLE NEOPLASM
     Dosage: UNK UNK,UNK
     Route: 042
     Dates: start: 20170802
  6. PERJETA [Suspect]
     Active Substance: PERTUZUMAB
     Indication: BREAST CANCER FEMALE
  7. NYSTATIN [NYSTATIN;ZINC OXIDE] [Concomitant]
     Indication: FEBRILE NEUTROPENIA
     Dosage: UNK
     Route: 048
     Dates: start: 20170811, end: 20170811
  8. DOCETAXEL. [Suspect]
     Active Substance: DOCETAXEL
     Indication: BREAST CANCER FEMALE
  9. ACCOFIL [Concomitant]
     Active Substance: FILGRASTIM
     Indication: FEBRILE NEUTROPENIA
     Dosage: UNK (DOSE: 48 MILLION UNITS)
     Route: 058
     Dates: start: 20170811, end: 20170814
  10. CIPRONEX [CIPROFLOXACIN] [Concomitant]
     Indication: FEBRILE NEUTROPENIA
     Dosage: 500 MG, Q12H
     Route: 048
     Dates: start: 20170811, end: 20170815

REACTIONS (3)
  - Abortion spontaneous [Unknown]
  - Maternal exposure during pregnancy [Unknown]
  - Febrile neutropenia [Unknown]

NARRATIVE: CASE EVENT DATE: 20170811
